FAERS Safety Report 18180772 (Version 2)
Quarter: 2020Q3

REPORT INFORMATION
  Report Type: Report from Study
  Country: US (occurrence: US)
  Receive Date: 20200821
  Receipt Date: 20200825
  Transmission Date: 20201103
  Serious: No
  Sender: FDA-Public Use
  Company Number: NVSC2020US220461

PATIENT
  Age: 42 Year
  Sex: Female

DRUGS (3)
  1. GLATOPA [Suspect]
     Active Substance: GLATIRAMER ACETATE
     Indication: MUSCLE SPASMS
  2. GLATOPA [Suspect]
     Active Substance: GLATIRAMER ACETATE
     Indication: MULTIPLE SCLEROSIS
     Dosage: 40 MG, QW3
     Route: 058
     Dates: start: 20200810, end: 20200811
  3. GLATOPA [Suspect]
     Active Substance: GLATIRAMER ACETATE
     Indication: PYREXIA

REACTIONS (11)
  - Allergic reaction to excipient [Unknown]
  - Nasopharyngitis [Unknown]
  - Injection site reaction [Unknown]
  - Muscle spasms [Unknown]
  - Chills [Unknown]
  - Injection site swelling [Unknown]
  - Injection site erythema [Unknown]
  - Incorrect dose administered [Unknown]
  - Injection site extravasation [Unknown]
  - Pyrexia [Unknown]
  - Administration site pain [Unknown]

NARRATIVE: CASE EVENT DATE: 20200810
